FAERS Safety Report 4412231-5 (Version None)
Quarter: 2004Q2

REPORT INFORMATION
  Report Type: 
  Country: None (occurrence: None)
  Receive Date: 20040630
  Receipt Date: 20040412
  Transmission Date: 20050107
  Serious: No
  Sender: FDA-Public Use
  Company Number: 04P-163-0257039-00

PATIENT
  Age: 70 Year
  Sex: Female
  Weight: 99.7913 kg

DRUGS (16)
  1. HUMIRA [Suspect]
     Indication: RHEUMATOID ARTHRITIS
     Dosage: 40 MG, 1 IN 2 WK, SUBCUTANEOUS
     Route: 058
     Dates: start: 20040224
  2. PREDNISONE [Concomitant]
  3. HYDROXYCHLOROQUINE PHOSPHATE [Concomitant]
  4. ACIFEX [Concomitant]
  5. DIGOXIN [Concomitant]
  6. METOPROLOL TARTRATE [Concomitant]
  7. FOLIC ACID [Concomitant]
  8. POTASSIUM [Concomitant]
  9. ASPIRIN [Concomitant]
  10. LEXAPRO [Concomitant]
  11. LORAZEPAM [Concomitant]
  12. ALBUTEROL SULFATE [Concomitant]
  13. FUROSEMIDE [Concomitant]
  14. OXYCODONE HCL [Concomitant]
  15. OXYCOCET [Concomitant]
  16. ISOSORBIDE [Concomitant]

REACTIONS (2)
  - DRUG INEFFECTIVE [None]
  - PETECHIAE [None]
